FAERS Safety Report 19974202 (Version 3)
Quarter: 2022Q1

REPORT INFORMATION
  Report Type: Report from Study
  Country: US (occurrence: US)
  Receive Date: 20211020
  Receipt Date: 20220201
  Transmission Date: 20220424
  Serious: No
  Sender: FDA-Public Use
  Company Number: US-NOVARTISTESTPH-NVSC2021US238933

PATIENT
  Sex: Female

DRUGS (1)
  1. ENTRESTO [Suspect]
     Active Substance: SACUBITRIL\VALSARTAN
     Indication: Product used for unknown indication
     Dosage: 100 MG, BID (49/51 MG)
     Route: 048
     Dates: start: 202110

REACTIONS (6)
  - Insomnia [Unknown]
  - Anxiety [Unknown]
  - Weight increased [Unknown]
  - Memory impairment [Unknown]
  - Fatigue [Unknown]
  - Abdominal distension [Not Recovered/Not Resolved]
